FAERS Safety Report 23907526 (Version 1)
Quarter: 2024Q2

REPORT INFORMATION
  Report Type: Spontaneous
  Country: US (occurrence: US)
  Receive Date: 20240528
  Receipt Date: 20240528
  Transmission Date: 20240715
  Serious: Yes (Other)
  Sender: FDA-Public Use
  Company Number: US-ALKEM LABORATORIES LIMITED-US-ALKEM-2024-10812

PATIENT
  Age: 35 Year
  Sex: Male

DRUGS (5)
  1. COLCHICINE [Suspect]
     Active Substance: COLCHICINE
     Indication: Autoinflammatory disease
     Dosage: UNK
     Route: 065
  2. ADALIMUMAB [Suspect]
     Active Substance: ADALIMUMAB\ISOPROPYL ALCOHOL
     Indication: Autoinflammatory disease
     Dosage: UNK
     Route: 065
  3. ANAKINRA [Suspect]
     Active Substance: ANAKINRA
     Indication: Autoinflammatory disease
     Dosage: UNK
     Route: 065
  4. METHOTREXATE [Suspect]
     Active Substance: METHOTREXATE
     Indication: Autoinflammatory disease
     Dosage: UNK
     Route: 065
  5. TOCILIZUMAB [Suspect]
     Active Substance: TOCILIZUMAB
     Indication: Autoinflammatory disease
     Dosage: UNK
     Route: 065

REACTIONS (1)
  - Whipple^s disease [Unknown]
